FAERS Safety Report 26079785 (Version 1)
Quarter: 2025Q4

REPORT INFORMATION
  Report Type: Spontaneous
  Country: US (occurrence: US)
  Receive Date: 20251123
  Receipt Date: 20251123
  Transmission Date: 20260118
  Serious: No
  Sender: INSUD PHARMA
  Company Number: US-INSUD PHARMA-2511US09410

PATIENT

DRUGS (2)
  1. KETOCONAZOLE [Suspect]
     Active Substance: KETOCONAZOLE
     Indication: Skin laceration
     Dosage: UNK, ONCE A DAY
     Route: 061
  2. KETOCONAZOLE [Suspect]
     Active Substance: KETOCONAZOLE
     Indication: Skin fissures
     Dosage: UNK, ONCE A DAY
     Route: 061

REACTIONS (3)
  - Inappropriate schedule of product administration [Unknown]
  - Device delivery system issue [Unknown]
  - Product physical consistency issue [Unknown]

NARRATIVE: CASE EVENT DATE: 20250101
